FAERS Safety Report 7790678-7 (Version None)
Quarter: 2011Q3

REPORT INFORMATION
  Report Type: 
  Country: None (occurrence: None)
  Receive Date: 20110930
  Receipt Date: 20110920
  Transmission Date: 20111222
  Serious: Yes (Hospitalization)
  Sender: FDA-Public Use
  Company Number: BR-US-EMD SERONO, INC.-7084520

PATIENT
  Sex: Female

DRUGS (2)
  1. ENALAPRIL MALEATE [Concomitant]
  2. REBIF [Suspect]
     Indication: RELAPSING-REMITTING MULTIPLE SCLEROSIS
     Dates: start: 20071005, end: 20110501

REACTIONS (3)
  - VOMITING [None]
  - WEIGHT DECREASED [None]
  - ACUTE MYELOID LEUKAEMIA [None]
